FAERS Safety Report 4682250-2 (Version None)
Quarter: 2005Q2

REPORT INFORMATION
  Report Type: 
  Country: None (occurrence: None)
  Receive Date: 20050601
  Receipt Date: 20050512
  Transmission Date: 20051028
  Serious: Yes (Hospitalization, Other)
  Sender: FDA-Public Use
  Company Number: 603577

PATIENT
  Age: 8 Year
  Sex: Male

DRUGS (1)
  1. FEIBA VH IMMUNO [Suspect]

REACTIONS (4)
  - COMPARTMENT SYNDROME [None]
  - DRUG EFFECT DECREASED [None]
  - INJURY [None]
  - POST PROCEDURAL HAEMORRHAGE [None]
